FAERS Safety Report 21185912 (Version 3)
Quarter: 2022Q3

REPORT INFORMATION
  Report Type: Spontaneous
  Country: US (occurrence: US)
  Receive Date: 20220808
  Receipt Date: 20220812
  Transmission Date: 20221027
  Serious: Yes (Other)
  Sender: FDA-Public Use
  Company Number: US-PFIZER INC-202201040785

PATIENT
  Age: 63 Year
  Sex: Female
  Weight: 104.3 kg

DRUGS (1)
  1. IBRANCE [Suspect]
     Active Substance: PALBOCICLIB
     Dosage: UNK
     Dates: end: 202203

REACTIONS (4)
  - Fall [Unknown]
  - Foot fracture [Unknown]
  - Ankle fracture [Unknown]
  - Skin ulcer [Unknown]
